FAERS Safety Report 8101481-2 (Version None)
Quarter: 2012Q1

REPORT INFORMATION
  Report Type: 
  Country: None (occurrence: None)
  Receive Date: 20120129
  Receipt Date: 20111011
  Transmission Date: 20120608
  Serious: No
  Sender: FDA-Public Use
  Company Number: US-ABBOTT-11P-163-0863164-00

PATIENT
  Age: 63 Year
  Sex: Female

DRUGS (4)
  1. HUMIRA [Suspect]
     Indication: ARTHRITIS
     Dates: start: 20110802
  2. HUMIRA [Suspect]
     Indication: CROHN'S DISEASE
  3. AZOPT [Concomitant]
     Indication: GLAUCOMA
     Dosage: TO RIGHT EYE
     Route: 047
  4. XALATAN [Concomitant]
     Indication: GLAUCOMA
     Dosage: TO RIGHT EYE
     Route: 047

REACTIONS (1)
  - ORAL HERPES [None]
